FAERS Safety Report 16478270 (Version 2)
Quarter: 2019Q2

REPORT INFORMATION
  Report Type: Spontaneous
  Country: JP (occurrence: JP)
  Receive Date: 20190626
  Receipt Date: 20190627
  Transmission Date: 20190711
  Serious: Yes (Other)
  Sender: FDA-Public Use
  Company Number: JP-ASTRAZENECA-2019SE73981

PATIENT
  Sex: Female

DRUGS (7)
  1. DOGMATYL [Concomitant]
     Active Substance: SULPIRIDE
     Indication: BIPOLAR DISORDER
     Route: 065
  2. LAMICTAL [Concomitant]
     Active Substance: LAMOTRIGINE
     Route: 048
  3. SEROQUEL [Suspect]
     Active Substance: QUETIAPINE FUMARATE
     Indication: BIPOLAR DISORDER
     Route: 048
     Dates: start: 20190605
  4. APOMORPHINE HYDROCHLORIDE [Concomitant]
     Active Substance: APOMORPHINE HYDROCHLORIDE
  5. SEROQUEL [Suspect]
     Active Substance: QUETIAPINE FUMARATE
     Indication: BIPOLAR DISORDER
     Route: 048
     Dates: start: 201903
  6. CYMBALTA [Concomitant]
     Active Substance: DULOXETINE HYDROCHLORIDE
     Route: 048
  7. BOIOGITO [Concomitant]

REACTIONS (8)
  - Malaise [Unknown]
  - Somnolence [Unknown]
  - Renal hypertension [Unknown]
  - Drug ineffective for unapproved indication [Unknown]
  - Blood pressure increased [Unknown]
  - Feeling abnormal [Unknown]
  - Bradykinesia [Unknown]
  - Weight increased [Unknown]
